FAERS Safety Report 10087391 (Version 1)
Quarter: 2014Q2

REPORT INFORMATION
  Report Type: Spontaneous
  Country: US (occurrence: US)
  Receive Date: 20140418
  Receipt Date: 20140418
  Transmission Date: 20141212
  Serious: No
  Sender: FDA-Public Use
  Company Number: US-PURDUE-USA-2014-0112389

PATIENT
  Sex: Male

DRUGS (4)
  1. OXYCONTIN (NDA 22-272) [Suspect]
     Indication: BACK PAIN
     Dosage: 80 MG, BID
     Route: 048
     Dates: start: 20140321
  2. OXYCONTIN (NDA 22-272) [Suspect]
     Dosage: 40 MG, BID
     Route: 048
  3. OXYCONTIN (NDA 22-272) [Suspect]
     Dosage: 30 MG, BID
     Route: 048
     Dates: start: 201211
  4. OXYCONTIN (NDA 22-272) [Suspect]
     Dosage: 60 MG, BID
     Route: 048
     Dates: start: 2013

REACTIONS (4)
  - Drug ineffective [Not Recovered/Not Resolved]
  - Constipation [Not Recovered/Not Resolved]
  - Nausea [Not Recovered/Not Resolved]
  - Vomiting [Not Recovered/Not Resolved]
